FAERS Safety Report 8277140-2 (Version None)
Quarter: 2012Q2

REPORT INFORMATION
  Report Type: 
  Country: None (occurrence: None)
  Receive Date: 20120412
  Receipt Date: 20120406
  Transmission Date: 20120825
  Serious: Yes (Other)
  Sender: FDA-Public Use
  Company Number: US-PFIZER INC-2012088139

PATIENT
  Sex: Male
  Weight: 109 kg

DRUGS (3)
  1. SITAGLIPTIN AND METFORMIN HYDROCHLORIDE [Concomitant]
     Indication: TYPE 2 DIABETES MELLITUS
     Dosage: UNK MG, 2X/DAY
     Route: 048
     Dates: start: 20070101
  2. LIPITOR [Suspect]
     Indication: HYPERCHOLESTEROLAEMIA
     Dosage: UNK
     Route: 048
     Dates: end: 20100101
  3. LANTUS [Concomitant]
     Indication: TYPE 2 DIABETES MELLITUS
     Dosage: 14 IU, 1X/DAY AT HS
     Route: 058
     Dates: start: 20070101

REACTIONS (3)
  - SWELLING [None]
  - PAIN IN EXTREMITY [None]
  - SPINAL DISORDER [None]
